FAERS Safety Report 7430189-1 (Version None)
Quarter: 2011Q2

REPORT INFORMATION
  Report Type: 
  Country: None (occurrence: None)
  Receive Date: 20110421
  Receipt Date: 20100811
  Transmission Date: 20111010
  Serious: No
  Sender: FDA-Public Use
  Company Number: US-ASTRAZENECA-2010SE37652

PATIENT
  Age: 69 Year
  Sex: Female

DRUGS (2)
  1. NEXIUM [Suspect]
     Route: 048
  2. TOPROL-XL [Suspect]
     Indication: CHEST PAIN
     Route: 048

REACTIONS (4)
  - SOMNOLENCE [None]
  - MALAISE [None]
  - DRUG INEFFECTIVE [None]
  - HYPERSENSITIVITY [None]
